FAERS Safety Report 10909729 (Version 1)
Quarter: 2015Q1

REPORT INFORMATION
  Report Type: Spontaneous
  Country: US (occurrence: US)
  Receive Date: 20150312
  Receipt Date: 20150312
  Transmission Date: 20150721
  Serious: No
  Sender: FDA-Public Use
  Company Number: US-SA-2014SA065478

PATIENT
  Age: 43 Year
  Sex: Male

DRUGS (4)
  1. NASACORT ALLERGY 24HR [Suspect]
     Active Substance: TRIAMCINOLONE ACETONIDE
     Indication: THROAT IRRITATION
     Dosage: FREQUENCY - 2 SPRAY/NOSTRIL
     Route: 045
     Dates: start: 201404, end: 20140505
  2. NASACORT ALLERGY 24HR [Suspect]
     Active Substance: TRIAMCINOLONE ACETONIDE
     Indication: COUGH
     Dosage: FREQUENCY - 2 SPRAY/NOSTRIL
     Route: 045
     Dates: start: 201404, end: 20140505
  3. NASACORT ALLERGY 24HR [Suspect]
     Active Substance: TRIAMCINOLONE ACETONIDE
     Indication: HYPERSENSITIVITY
     Dosage: FREQUENCY - 2 SPRAY/NOSTRIL
     Route: 045
     Dates: start: 201404, end: 20140505
  4. NASACORT ALLERGY 24HR [Suspect]
     Active Substance: TRIAMCINOLONE ACETONIDE
     Indication: HEADACHE
     Dosage: FREQUENCY - 2 SPRAY/NOSTRIL
     Route: 045
     Dates: start: 201404, end: 20140505

REACTIONS (1)
  - Hypersensitivity [Unknown]
